FAERS Safety Report 6879591-7 (Version None)
Quarter: 2010Q3

REPORT INFORMATION
  Report Type: 
  Country: None (occurrence: None)
  Receive Date: 20100728
  Receipt Date: 20100716
  Transmission Date: 20110219
  Serious: Yes (Hospitalization)
  Sender: FDA-Public Use
  Company Number: JP-NOVOPROD-309937

PATIENT
  Age: 61 Year
  Sex: Male
  Weight: 62 kg

DRUGS (4)
  1. NOVORAPID 30 MIX CHU FLEXPEN [Suspect]
     Indication: TYPE 2 DIABETES MELLITUS
     Dosage: /SC
     Route: 058
     Dates: start: 20060201, end: 20060401
  2. NOVORAPID CHU FLEXPEN [Suspect]
     Indication: TYPE 2 DIABETES MELLITUS
     Dosage: 2 U, UNK
     Route: 058
     Dates: start: 20060401
  3. GLUFAST [Concomitant]
     Dosage: UNK
     Dates: start: 20060401, end: 20080301
  4. BASEN [Concomitant]
     Dosage: UNK
     Dates: start: 20080301

REACTIONS (4)
  - ANTI-GAD ANTIBODY POSITIVE [None]
  - ANTI-INSULIN ANTIBODY POSITIVE [None]
  - AUTOANTIBODY POSITIVE [None]
  - DIABETES MELLITUS INADEQUATE CONTROL [None]
